FAERS Safety Report 5076266-4 (Version None)
Quarter: 2006Q3

REPORT INFORMATION
  Report Type: 
  Country: None (occurrence: None)
  Receive Date: 20060804
  Receipt Date: 20060802
  Transmission Date: 20061208
  Serious: Yes (Hospitalization)
  Sender: FDA-Public Use
  Company Number: 221171

PATIENT
  Age: 75 Year
  Sex: Male

DRUGS (14)
  1. MABTHERA (RITUXIMAB) CONC FOR SOLUTION FOR INFUSION [Suspect]
     Indication: LYMPHOPROLIFERATIVE DISORDER
     Dosage: 600 MG, INTRAVENOUS
     Route: 042
     Dates: start: 20040923, end: 20041228
  2. ETOPOSIDE [Suspect]
     Indication: DRUG USE FOR UNKNOWN INDICATION
     Dosage: 160 MG, INTRAVENOUS
     Route: 042
     Dates: start: 20040923, end: 20041228
  3. CYCLOPHOSPHAMIDE [Suspect]
     Indication: DRUG USE FOR UNKNOWN INDICATION
     Dosage: 1200 MG, INTRAVENOUS
     Route: 042
     Dates: start: 20040923, end: 20041228
  4. PREDNISONE TAB [Suspect]
     Indication: DRUG USE FOR UNKNOWN INDICATION
     Dates: start: 20040923, end: 20041228
  5. DOXORUBICIN HCL [Suspect]
     Indication: DRUG USE FOR UNKNOWN INDICATION
     Dosage: 80 MG, INTRAVENOUS
     Route: 042
     Dates: start: 20040923, end: 20041228
  6. METHOTREXATE [Concomitant]
  7. ONCOVIN [Concomitant]
  8. NEORAL [Concomitant]
  9. SOLUPRED (PREDNISOLONE) [Concomitant]
  10. PAROXETINE HYDROCHLORIDE [Concomitant]
  11. XANAX [Concomitant]
  12. NEORECORMON (EPOETIN BETA) [Concomitant]
  13. OMEPRAZOLE [Concomitant]
  14. BECILAN (PYRIDOXINE HYDROCHLORIDE) [Concomitant]

REACTIONS (6)
  - ANAEMIA [None]
  - DEPRESSION [None]
  - FEBRILE BONE MARROW APLASIA [None]
  - NEUROPATHY PERIPHERAL [None]
  - NEUTROPENIA [None]
  - WEIGHT DECREASED [None]
